FAERS Safety Report 20727400 (Version 1)
Quarter: 2022Q2

REPORT INFORMATION
  Report Type: Other
  Country: US (occurrence: None)
  Receive Date: 20220419
  Receipt Date: 20220419
  Transmission Date: 20220720
  Serious: No
  Sender: FDA-Public Use
  Company Number: US-ROCHE-2837433

PATIENT
  Sex: Female
  Weight: 0.469 kg

DRUGS (3)
  1. BEVACIZUMAB [Suspect]
     Active Substance: BEVACIZUMAB
     Indication: Retinopathy of prematurity
     Route: 050
  2. TOBRAMYCIN [Concomitant]
     Active Substance: TOBRAMYCIN
     Dosage: 3 TO 4 TIMES DAILY FOR 2 WEEKS
     Route: 061
  3. DEXAMETHASONE [Concomitant]
     Active Substance: DEXAMETHASONE
     Dosage: 3 TO 4 TIMES DAILY FOR 2 WEEKS
     Route: 061

REACTIONS (2)
  - Off label use [Unknown]
  - No adverse event [Unknown]
